FAERS Safety Report 15585109 (Version 2)
Quarter: 2018Q4

REPORT INFORMATION
  Report Type: Report from Study
  Country: HR (occurrence: HR)
  Receive Date: 20181102
  Receipt Date: 20181109
  Transmission Date: 20190205
  Serious: Yes (Death)
  Sender: FDA-Public Use
  Company Number: HR-PFIZER INC-2018446482

PATIENT
  Age: 74 Year
  Sex: Female
  Weight: 92 kg

DRUGS (10)
  1. INDACATEROL [Concomitant]
     Active Substance: INDACATEROL
     Indication: CHRONIC OBSTRUCTIVE PULMONARY DISEASE
     Dosage: 150 UG, DAILY
     Route: 055
     Dates: start: 20150801
  2. PRILEN PLUS [Concomitant]
     Active Substance: HYDROCHLOROTHIAZIDE\RAMIPRIL
     Indication: HYPERTENSION
     Dosage: 2.5 MG, DAILY
     Route: 048
     Dates: start: 20180511
  3. DIUVER [Concomitant]
     Active Substance: TORSEMIDE
     Indication: CARDIAC FAILURE
     Dosage: 10 MG, DAILY
     Route: 048
     Dates: start: 20180511
  4. SILDENAFIL CITRATE. [Suspect]
     Active Substance: SILDENAFIL CITRATE
     Indication: PULMONARY HYPERTENSION
     Dosage: 5 MG, 3X/DAY
     Route: 048
     Dates: start: 20161130, end: 20180528
  5. ALOPURINOL [Concomitant]
     Active Substance: ALLOPURINOL
     Indication: HYPERTENSION
     Dosage: 100 MG, DAILY
     Route: 048
     Dates: start: 20171024
  6. ACETYLSALICYLIC ACID [Concomitant]
     Active Substance: ASPIRIN
     Indication: HYPERTENSION
     Dosage: 100 MG, DAILY
     Route: 048
     Dates: start: 20171024
  7. PANTOPRAZOLUM [Concomitant]
     Indication: HYPERSENSITIVITY
     Dosage: 40 MG, DAILY
     Route: 048
     Dates: start: 20180511
  8. FEXOFENADINUM [Concomitant]
     Indication: HYPERSENSITIVITY
     Dosage: 180 MG, DAILY
     Route: 048
     Dates: start: 20180121
  9. IPRATROPIUM/SALBUTAMOL [Concomitant]
     Indication: CHRONIC OBSTRUCTIVE PULMONARY DISEASE
     Dosage: 5 MG, DAILY
     Route: 048
     Dates: start: 20180511
  10. OXYGEN. [Concomitant]
     Active Substance: OXYGEN
     Indication: CHRONIC OBSTRUCTIVE PULMONARY DISEASE
     Dosage: 1 L/MIN, DAILY
     Route: 055
     Dates: start: 20150808

REACTIONS (1)
  - Death [Fatal]

NARRATIVE: CASE EVENT DATE: 20181010
